FAERS Safety Report 24132811 (Version 1)
Quarter: 2024Q3

REPORT INFORMATION
  Report Type: Spontaneous
  Country: US (occurrence: None)
  Receive Date: 20240723
  Receipt Date: 20240723
  Transmission Date: 20241017
  Serious: Yes (Hospitalization)
  Sender: Public
  Company Number: None

PATIENT
  Sex: Female

DRUGS (11)
  1. MYCOPHENOLIC ACID [Suspect]
     Active Substance: MYCOPHENOLIC ACID
     Indication: Renal transplant
     Dosage: FREQUENCY : DAILY;?
     Route: 048
     Dates: start: 20210224
  2. AMILORIDE [Concomitant]
     Active Substance: AMILORIDE
  3. BUPROPION [Concomitant]
     Active Substance: BUPROPION
  4. CALCITRIOL [Concomitant]
     Active Substance: CALCITRIOL
  5. ESCITALOPRAM [Concomitant]
     Active Substance: ESCITALOPRAM OXALATE
  6. FLUCONAZOLE [Concomitant]
     Active Substance: FLUCONAZOLE
  7. MAGNESIUM [Concomitant]
     Active Substance: MAGNESIUM
  8. MYCOPHENOLIC ACID [Concomitant]
     Active Substance: MYCOPHENOLIC ACID
  9. OZEMPIC [Suspect]
     Active Substance: SEMAGLUTIDE
  10. PRAVASTATIN [Concomitant]
  11. PREDNISONE [Suspect]
     Active Substance: PREDNISONE

REACTIONS (2)
  - Transient ischaemic attack [None]
  - Intentional dose omission [None]
